FAERS Safety Report 24205799 (Version 3)
Quarter: 2024Q3

REPORT INFORMATION
  Report Type: Spontaneous
  Country: US (occurrence: None)
  Receive Date: 20240813
  Receipt Date: 20240903
  Transmission Date: 20241016
  Serious: Yes (Life-Threatening, Hospitalization, Other)
  Sender: ASTRAZENECA
  Company Number: 2024A182043

PATIENT
  Age: 68 Year
  Sex: Male
  Weight: 70.8 kg

DRUGS (8)
  1. OLAPARIB [Suspect]
     Active Substance: OLAPARIB
     Indication: Prostate cancer
     Route: 048
     Dates: start: 20230630, end: 20230728
  2. OLAPARIB [Suspect]
     Active Substance: OLAPARIB
     Indication: Prostate cancer
     Route: 048
     Dates: start: 20231020
  3. JANUVIA [Concomitant]
     Active Substance: SITAGLIPTIN PHOSPHATE
  4. ASPIRIN [Concomitant]
     Active Substance: ASPIRIN
  5. GLUCOTROL [Concomitant]
     Active Substance: GLIPIZIDE
  6. HYDROCHLOROTHIAZIDE [Concomitant]
     Active Substance: HYDROCHLOROTHIAZIDE
  7. GLUCOPHAGE [Concomitant]
     Active Substance: METFORMIN HYDROCHLORIDE
  8. LEUPROLIDE [Concomitant]
     Active Substance: LEUPROLIDE

REACTIONS (10)
  - Myxoedema [Unknown]
  - Decompensated hypothyroidism [Not Recovered/Not Resolved]
  - Hypoglycaemia [Not Recovered/Not Resolved]
  - Hypothermia [Unknown]
  - Hyperglycaemia [Unknown]
  - Abdominal pain [Unknown]
  - Constipation [Unknown]
  - Decreased appetite [Unknown]
  - Underdose [Unknown]
  - Inappropriate schedule of product administration [Unknown]

NARRATIVE: CASE EVENT DATE: 20231020
